FAERS Safety Report 14775706 (Version 2)
Quarter: 2018Q2

REPORT INFORMATION
  Report Type: Report from Study
  Country: CA (occurrence: CA)
  Receive Date: 20180418
  Receipt Date: 20180529
  Transmission Date: 20180711
  Serious: Yes (Other)
  Sender: FDA-Public Use
  Company Number: CA-JNJFOC-20180413562

PATIENT
  Age: 57 Year
  Sex: Female
  Weight: 97.5 kg

DRUGS (2)
  1. PREDNISONE. [Concomitant]
     Active Substance: PREDNISONE
     Route: 048
  2. REMICADE [Suspect]
     Active Substance: INFLIXIMAB
     Indication: PSORIATIC ARTHROPATHY
     Route: 042
     Dates: start: 20170529

REACTIONS (2)
  - Basal cell carcinoma [Recovering/Resolving]
  - Osteoarthritis [Recovered/Resolved with Sequelae]

NARRATIVE: CASE EVENT DATE: 201712
